FAERS Safety Report 8780810 (Version 1)
Quarter: 2012Q4

REPORT INFORMATION
  Report Type: 
  Country: CH (occurrence: CH)
  Receive Date: 20120913
  Receipt Date: 20120913
  Transmission Date: 20130627
  Serious: Yes (Hospitalization, Other)
  Sender: FDA-Public Use
  Company Number: CH-009507513-1209CHE002509

PATIENT

DRUGS (5)
  1. REMERON [Suspect]
     Dosage: 10 unit, Once
     Route: 048
     Dates: start: 20120523, end: 20120523
  2. QUETIAPINE FUMARATE [Suspect]
     Dosage: 20 unit, Once
     Route: 048
     Dates: start: 20120523, end: 20120523
  3. QUETIAPINE FUMARATE [Suspect]
     Dosage: 40 unit, Once
     Route: 048
     Dates: start: 20120523, end: 20120523
  4. ACETAMINOPHEN [Suspect]
     Dosage: UNK, Once
     Route: 048
     Dates: start: 20120523, end: 20120523
  5. IBUPROFEN [Suspect]
     Dosage: 4000 mg, Once
     Route: 048
     Dates: start: 20120523, end: 20120523

REACTIONS (7)
  - Rhabdomyolysis [Recovering/Resolving]
  - Electrocardiogram QT prolonged [Unknown]
  - Dizziness [Unknown]
  - Blood creatinine increased [Recovering/Resolving]
  - Suicide attempt [Recovered/Resolved]
  - Poisoning [Unknown]
  - Intentional overdose [Unknown]
